FAERS Safety Report 23239629 (Version 1)
Quarter: 2023Q4

REPORT INFORMATION
  Report Type: Spontaneous
  Country: US (occurrence: None)
  Receive Date: 20231128
  Receipt Date: 20231128
  Transmission Date: 20240110
  Serious: No
  Sender: FDA-Public Use
  Company Number: None

PATIENT
  Age: 82 Year
  Sex: Female
  Weight: 101.7 kg

DRUGS (1)
  1. SEMAGLUTIDE [Suspect]
     Active Substance: SEMAGLUTIDE
     Dosage: FREQUENCY : WEEKLY;?
     Route: 058
     Dates: start: 20231117, end: 20231126

REACTIONS (7)
  - Arthralgia [None]
  - Headache [None]
  - Pain [None]
  - Back pain [None]
  - Abdominal pain [None]
  - Neck pain [None]
  - Feeling abnormal [None]

NARRATIVE: CASE EVENT DATE: 20231126
